FAERS Safety Report 11174166 (Version 1)
Quarter: 2015Q2

REPORT INFORMATION
  Report Type: Spontaneous
  Country: GB (occurrence: None)
  Receive Date: 20150605
  Receipt Date: 20150605
  Transmission Date: 20150821
  Serious: Yes (Other)
  Sender: FDA-Public Use
  Company Number: GB2015GSK075414

PATIENT
  Age: 54 Year
  Sex: Male

DRUGS (10)
  1. RAMIPRIL. [Concomitant]
     Active Substance: RAMIPRIL
  2. AMLODIPINE [Concomitant]
     Active Substance: AMLODIPINE BESYLATE
  3. ATORVASTATIN (ATORVASTATIN) [Concomitant]
     Active Substance: ATORVASTATIN
  4. 3TC (LAMIVUDINE) UNKNOWN [Suspect]
     Active Substance: LAMIVUDINE
     Indication: HIV INFECTION
     Dates: start: 1996, end: 2008
  5. STAVUDINE (STAVUDINE) [Suspect]
     Active Substance: STAVUDINE
     Indication: HIV INFECTION
     Dates: start: 1998, end: 2003
  6. INDINAVIR (INDINACIR) [Suspect]
     Active Substance: INDINAVIR
     Indication: HIV INFECTION
     Dates: start: 1996, end: 1998
  7. SAQUINAVIR (SAQUINAVIR) [Suspect]
     Active Substance: SAQUINAVIR
     Indication: HIV INFECTION
     Dates: start: 1998
  8. GLICLAZIDE [Concomitant]
     Active Substance: GLICLAZIDE
  9. ZIDOVUDINE (ZIDOVUDINE) UNKNOWN) [Suspect]
     Active Substance: ZIDOVUDINE
     Indication: HIV INFECTION
     Dates: start: 1996, end: 1998
  10. EFAVIRENZ (EFAVIRENZ) UNKNOWN [Suspect]
     Active Substance: EFAVIRENZ
     Indication: PRODUCT USED FOR UNKNOWN INDICATION
     Dates: start: 1999, end: 2003

REACTIONS (3)
  - Nephrolithiasis [None]
  - Depression [None]
  - Diarrhoea [None]

NARRATIVE: CASE EVENT DATE: 1996
